FAERS Safety Report 17822746 (Version 2)
Quarter: 2020Q3

REPORT INFORMATION
  Report Type: Report from Study
  Country: CO (occurrence: CO)
  Receive Date: 20200526
  Receipt Date: 20200710
  Transmission Date: 20201102
  Serious: Yes (Hospitalization)
  Sender: FDA-Public Use
  Company Number: CO-ROCHE-2608109

PATIENT
  Age: 60 Year
  Sex: Male

DRUGS (3)
  1. XOLAIR [Suspect]
     Active Substance: OMALIZUMAB
     Indication: IDIOPATHIC URTICARIA
     Route: 058
     Dates: start: 20190621
  2. PROPRANOLOL [Concomitant]
     Active Substance: PROPRANOLOL HYDROCHLORIDE
     Indication: CARDIOVASCULAR DISORDER
     Dosage: 5 MG, QD
     Route: 048
     Dates: start: 2007
  3. XOLAIR [Suspect]
     Active Substance: OMALIZUMAB
     Route: 058
     Dates: start: 2007

REACTIONS (7)
  - Haemorrhage [Not Recovered/Not Resolved]
  - Tuberculosis [Unknown]
  - Intestinal haemorrhage [Not Recovered/Not Resolved]
  - Pain [Unknown]
  - Hepatic steatosis [Unknown]
  - Abdominal pain [Not Recovered/Not Resolved]
  - Radiculopathy [Unknown]

NARRATIVE: CASE EVENT DATE: 20200515
